FAERS Safety Report 7301843-7 (Version None)
Quarter: 2011Q1

REPORT INFORMATION
  Report Type: 
  Country: None (occurrence: None)
  Receive Date: 20110208
  Receipt Date: 20110128
  Transmission Date: 20110831
  Serious: Yes (Hospitalization)
  Sender: FDA-Public Use
  Company Number: LEO-2011-00139

PATIENT
  Sex: Male

DRUGS (1)
  1. TACLONEX [Suspect]
     Indication: PSORIASIS
     Dosage: 7 TO 8 TUBES MONTHLY PRESCRIBED, TOPICAL
     Route: 061

REACTIONS (2)
  - OVERDOSE [None]
  - HYPERCALCAEMIA [None]
